FAERS Safety Report 9297990 (Version 2)
Quarter: 2013Q3

REPORT INFORMATION
  Report Type: Report from Study
  Country: ES (occurrence: ES)
  Receive Date: 20130520
  Receipt Date: 20130708
  Transmission Date: 20140515
  Serious: Yes (Other)
  Sender: FDA-Public Use
  Company Number: ES-ROCHE-1224438

PATIENT
  Age: 57 Year
  Sex: Female

DRUGS (4)
  1. RIBAVIRIN [Suspect]
     Indication: HEPATITIS C
     Dosage: 3 CAPSULES IN THE MORNING AND 2 CAPSULES AT NIGHT
     Route: 048
     Dates: start: 20100927, end: 201102
  2. RIBAVIRIN [Suspect]
     Indication: ANTIVIRAL TREATMENT
  3. PEG-INTERFERON ALFA 2A [Suspect]
     Indication: HEPATITIS C
     Route: 065
     Dates: start: 20100927, end: 201102
  4. PEG-INTERFERON ALFA 2A [Suspect]
     Indication: ANTIVIRAL TREATMENT

REACTIONS (1)
  - Liver transplant rejection [Recovered/Resolved]
